FAERS Safety Report 8340424-3 (Version None)
Quarter: 2012Q2

REPORT INFORMATION
  Report Type: 
  Country: None (occurrence: None)
  Receive Date: 20120507
  Receipt Date: 20120507
  Transmission Date: 20120825
  Serious: Yes (Other)
  Sender: FDA-Public Use
  Company Number: None

PATIENT
  Age: 51 Year
  Sex: Female
  Weight: 108.86 kg

DRUGS (1)
  1. SINGULAIR [Suspect]
     Indication: MULTIPLE ALLERGIES
     Dosage: |DOSAGETEXT: 1 TABLET||STRENGTH: 10 MG||FREQ: 1 PER DAY||ROUTE: ORAL|
     Route: 048
     Dates: start: 20120130, end: 20120203

REACTIONS (6)
  - JOINT SWELLING [None]
  - ARTHRALGIA [None]
  - GAIT DISTURBANCE [None]
  - MEDICATION ERROR [None]
  - JOINT STIFFNESS [None]
  - WEIGHT BEARING DIFFICULTY [None]
